FAERS Safety Report 10831568 (Version 1)
Quarter: 2015Q1

REPORT INFORMATION
  Report Type: Report from Study
  Country: US (occurrence: US)
  Receive Date: 20150219
  Receipt Date: 20150219
  Transmission Date: 20150721
  Serious: No
  Sender: FDA-Public Use
  Company Number: US-ABBVIE-14P-163-1194385-00

PATIENT
  Age: 21 Year
  Sex: Female
  Weight: 52.21 kg

DRUGS (4)
  1. HUMIRA [Suspect]
     Active Substance: ADALIMUMAB
     Indication: CROHN^S DISEASE
     Dates: start: 20131220, end: 20131220
  2. HUMIRA [Suspect]
     Active Substance: ADALIMUMAB
     Dates: start: 201402
  3. HUMIRA [Suspect]
     Active Substance: ADALIMUMAB
     Dates: start: 20140103, end: 20140103
  4. HUMIRA [Suspect]
     Active Substance: ADALIMUMAB
     Dates: start: 20140117, end: 20140117

REACTIONS (7)
  - Clostridium difficile infection [Recovered/Resolved]
  - Haematochezia [Not Recovered/Not Resolved]
  - Diarrhoea [Recovering/Resolving]
  - Abdominal pain [Not Recovered/Not Resolved]
  - Diarrhoea [Not Recovered/Not Resolved]
  - Crohn^s disease [Not Recovered/Not Resolved]
  - Haematochezia [Recovered/Resolved]

NARRATIVE: CASE EVENT DATE: 201401
